FAERS Safety Report 6525567-9 (Version None)
Quarter: 2010Q1

REPORT INFORMATION
  Report Type: 
  Country: None (occurrence: None)
  Receive Date: 20100104
  Receipt Date: 20091223
  Transmission Date: 20100710
  Serious: Yes (Hospitalization)
  Sender: FDA-Public Use
  Company Number: AU-PFIZER INC-2009315016

PATIENT
  Sex: Male

DRUGS (5)
  1. ZELDOX [Suspect]
     Indication: DELUSION
     Dosage: 40 MG, 1X/DAY
  2. ZELDOX [Suspect]
     Dosage: 40 MG, 2X/DAY
  3. ZELDOX [Suspect]
     Dosage: 60 MG, 2X/DAY
  4. ZELDOX [Suspect]
     Dosage: 40 MG, 2X/DAY
  5. ZELDOX [Suspect]
     Dosage: 40 MG, 1X/DAY

REACTIONS (3)
  - ANXIETY [None]
  - CHEST DISCOMFORT [None]
  - SUICIDAL IDEATION [None]
